FAERS Safety Report 8236864-3 (Version None)
Quarter: 2012Q1

REPORT INFORMATION
  Report Type: 
  Country: None (occurrence: None)
  Receive Date: 20120327
  Receipt Date: 20120106
  Transmission Date: 20120608
  Serious: No
  Sender: FDA-Public Use
  Company Number: US-GLAXOSMITHKLINE-A0960409A

PATIENT
  Age: 27 Year
  Sex: Male

DRUGS (2)
  1. KEPPRA [Concomitant]
  2. LAMICTAL XR [Suspect]
     Indication: EPILEPSY
     Dosage: 25MG PER DAY
     Route: 048
     Dates: start: 20110427, end: 20110428

REACTIONS (2)
  - PRURITUS [None]
  - RASH [None]
